FAERS Safety Report 19696580 (Version 2)
Quarter: 2025Q4

REPORT INFORMATION
  Report Type: Spontaneous
  Country: EU (occurrence: EU)
  Receive Date: 20210813
  Receipt Date: 20251108
  Transmission Date: 20260118
  Serious: Yes (Death, Other)
  Sender: AUROBINDO
  Company Number: EU-MYLANLABS-2021M1005839

PATIENT
  Age: 67 Year
  Sex: Female

DRUGS (7)
  1. IRINOTECAN [Suspect]
     Active Substance: IRINOTECAN
     Indication: Colorectal adenocarcinoma
     Dosage: UNK
     Route: 065
  2. IRINOTECAN [Suspect]
     Active Substance: IRINOTECAN
     Indication: Colorectal cancer metastatic
     Dosage: UNK
     Route: 042
     Dates: start: 2014, end: 2016
  3. CETUXIMAB [Suspect]
     Active Substance: CETUXIMAB
     Indication: Colorectal adenocarcinoma
     Dosage: UNK
     Route: 065
  4. CETUXIMAB [Suspect]
     Active Substance: CETUXIMAB
     Indication: Colorectal cancer metastatic
     Dosage: UNK
     Route: 042
     Dates: start: 2014, end: 2016
  5. LEUCOVORIN [Suspect]
     Active Substance: LEUCOVORIN\LEUCOVORIN CALCIUM
     Indication: Colorectal adenocarcinoma
     Dosage: UNK
     Route: 065
     Dates: end: 201510
  6. FLUOROURACIL [Suspect]
     Active Substance: FLUOROURACIL
     Indication: Colorectal adenocarcinoma
     Dosage: UNK
     Route: 065
     Dates: end: 201510
  7. REGORAFENIB [Suspect]
     Active Substance: REGORAFENIB
     Indication: Disease progression
     Dosage: UNK
     Route: 065
     Dates: start: 201512

REACTIONS (6)
  - Sepsis [Fatal]
  - Hepatic failure [Fatal]
  - Anaemia [Unknown]
  - Neutropenia [Unknown]
  - Haematotoxicity [Recovered/Resolved]
  - Rash [Recovered/Resolved]

NARRATIVE: CASE EVENT DATE: 20140101
